FAERS Safety Report 16426234 (Version 2)
Quarter: 2019Q3

REPORT INFORMATION
  Report Type: Spontaneous
  Country: US (occurrence: US)
  Receive Date: 20190613
  Receipt Date: 20190703
  Transmission Date: 20191004
  Serious: No
  Sender: FDA-Public Use
  Company Number: PHEH2019US024140

PATIENT
  Sex: Female
  Weight: 117 kg

DRUGS (1)
  1. COSENTYX [Suspect]
     Active Substance: SECUKINUMAB
     Indication: PRODUCT USED FOR UNKNOWN INDICATION
     Dosage: 150 MG, QW
     Route: 058
     Dates: start: 20190509, end: 20190529

REACTIONS (6)
  - Impatience [Unknown]
  - Haemorrhoids [Unknown]
  - Pyrexia [Unknown]
  - Diarrhoea [Unknown]
  - Joint swelling [Unknown]
  - Burning sensation [Unknown]
